FAERS Safety Report 12599806 (Version 1)
Quarter: 2016Q3

REPORT INFORMATION
  Report Type: Spontaneous
  Country: US (occurrence: US)
  Receive Date: 20160727
  Receipt Date: 20160727
  Transmission Date: 20161109
  Serious: Yes (Death)
  Sender: FDA-Public Use
  Company Number: GXBR2016US002349

PATIENT
  Sex: Female

DRUGS (1)
  1. ZINC OXIDE. [Suspect]
     Active Substance: ZINC OXIDE
     Indication: THERMAL BURN
     Dosage: UNK DF, UNK
     Route: 065

REACTIONS (1)
  - Death [Fatal]
